FAERS Safety Report 6603649-0 (Version None)
Quarter: 2010Q1

REPORT INFORMATION
  Report Type: 
  Country: None (occurrence: None)
  Receive Date: 20100226
  Receipt Date: 20100218
  Transmission Date: 20100710
  Serious: Yes (Hospitalization, Other)
  Sender: FDA-Public Use
  Company Number: US-JNJFOC-20091206751

PATIENT
  Sex: Male
  Weight: 65.77 kg

DRUGS (14)
  1. DURAGESIC-100 [Suspect]
     Indication: DRUG USE FOR UNKNOWN INDICATION
     Route: 048
  2. UNKNOWN MEDICATION [Suspect]
     Indication: DRUG USE FOR UNKNOWN INDICATION
     Route: 065
  3. OPANA [Suspect]
     Indication: DRUG USE FOR UNKNOWN INDICATION
     Route: 065
  4. OXYCONTIN [Suspect]
     Indication: DRUG USE FOR UNKNOWN INDICATION
     Route: 042
  5. IBUPROFEN [Concomitant]
     Indication: PAIN
     Dosage: 400.0 MG ONE DOSE
     Route: 065
  6. LOPERAMIDE [Concomitant]
     Indication: DIARRHOEA
     Dosage: 2.0 MG ONE DOSE
     Route: 065
  7. MULTI-VITAMINS [Concomitant]
     Indication: MEDICAL DIET
     Route: 065
  8. CHLORPHENIRAMINE MALEATE [Concomitant]
     Indication: NASAL CONGESTION
     Dosage: ONE SPRAY
     Route: 065
  9. TRAZODONE HCL [Concomitant]
     Indication: INSOMNIA
     Dosage: AT HS (HOUR OF SLEEP)
     Route: 065
  10. NASAL SPRAY UNSPECIFIED [Concomitant]
     Indication: NASAL CONGESTION
     Dosage: ONE SPRAY
     Route: 065
  11. CLONIDINE [Concomitant]
     Indication: DRUG DEPENDENCE
     Dosage: 0.1 MG ONE DOSE
     Route: 065
  12. HYDROXYZINE [Concomitant]
     Indication: AGITATION
     Dosage: EVERY 4 HRS (Q 4H) PRN (AS NECESSARY)
     Route: 065
  13. OPIATES [Concomitant]
     Route: 065
  14. CANNABIS [Concomitant]
     Route: 065

REACTIONS (3)
  - HEPATIC ENZYME INCREASED [None]
  - INTENTIONAL DRUG MISUSE [None]
  - MULTIPLE DRUG OVERDOSE [None]
